FAERS Safety Report 11380040 (Version 7)
Quarter: 2024Q1

REPORT INFORMATION
  Report Type: Spontaneous
  Country: GR (occurrence: GR)
  Receive Date: 20150814
  Receipt Date: 20240214
  Transmission Date: 20240410
  Serious: Yes (Hospitalization, Other)
  Sender: FDA-Public Use
  Company Number: PHHY2015GR095837

PATIENT
  Age: 53 Year
  Sex: Female

DRUGS (31)
  1. GEMCITABINE [Suspect]
     Active Substance: GEMCITABINE
     Indication: Metastases to bone
     Dosage: UNK, CYCLIC
     Route: 065
     Dates: start: 2008
  2. GEMCITABINE [Suspect]
     Active Substance: GEMCITABINE
     Dosage: UNK
     Route: 065
  3. LETROZOLE [Suspect]
     Active Substance: LETROZOLE
     Indication: Metastases to bone
     Dosage: UNK
     Route: 065
     Dates: start: 2008
  4. PACLITAXEL [Suspect]
     Active Substance: PACLITAXEL
     Indication: Invasive ductal breast carcinoma
     Dosage: UNK, CYCLIC (UNKNOWN)
     Route: 065
     Dates: start: 2008
  5. DOCETAXEL [Suspect]
     Active Substance: DOCETAXEL\DOCETAXEL ANHYDROUS
     Indication: Invasive ductal breast carcinoma
     Dosage: UNK, CYCLIC
     Route: 065
     Dates: start: 2008
  6. ZOLEDRONIC ACID [Suspect]
     Active Substance: ZOLEDRONIC ACID
     Indication: Metastases to bone
     Dosage: UNK, CYCLIC (UNKNOWN)
     Route: 065
     Dates: start: 2008
  7. ZOLEDRONIC ACID [Suspect]
     Active Substance: ZOLEDRONIC ACID
     Indication: Invasive ductal breast carcinoma
  8. ZOLEDRONIC ACID [Suspect]
     Active Substance: ZOLEDRONIC ACID
     Indication: Metastases to bone
  9. CAPECITABINE [Suspect]
     Active Substance: CAPECITABINE
     Indication: Invasive ductal breast carcinoma
     Dosage: UNK, CYCLIC (1 IN 1)
     Route: 065
     Dates: start: 2008
  10. CAPECITABINE [Suspect]
     Active Substance: CAPECITABINE
     Dosage: UNK
     Route: 065
  11. CARBOPLATIN [Suspect]
     Active Substance: CARBOPLATIN
     Indication: Metastases to bone
     Dosage: UNK, CYCLIC
     Route: 065
     Dates: start: 2008
  12. CARBOPLATIN [Suspect]
     Active Substance: CARBOPLATIN
     Indication: Invasive ductal breast carcinoma
  13. BEVACIZUMAB [Suspect]
     Active Substance: BEVACIZUMAB
     Indication: Metastases to bone
     Dosage: UNK, CYCLIC
     Route: 065
     Dates: start: 2008
  14. BEVACIZUMAB [Suspect]
     Active Substance: BEVACIZUMAB
     Indication: Invasive ductal breast carcinoma
     Dosage: UNK
     Route: 065
  15. DOXORUBICIN HYDROCHLORIDE [Suspect]
     Active Substance: DOXORUBICIN HYDROCHLORIDE
     Indication: Metastases to bone
     Dosage: UNK, CYCLIC (1 IN 1)
     Route: 065
     Dates: start: 2008
  16. DOXORUBICIN HYDROCHLORIDE [Suspect]
     Active Substance: DOXORUBICIN HYDROCHLORIDE
     Indication: Invasive ductal breast carcinoma
  17. INIPARIB [Suspect]
     Active Substance: INIPARIB
     Indication: Metastases to bone
     Dosage: UNK, CYCLIC
     Route: 065
     Dates: start: 2008
  18. INIPARIB [Suspect]
     Active Substance: INIPARIB
     Indication: Invasive ductal breast carcinoma
  19. INIPARIB [Suspect]
     Active Substance: INIPARIB
     Indication: Metastases to bone
  20. ERIBULIN [Suspect]
     Active Substance: ERIBULIN
     Indication: Metastases to bone
     Dosage: UNKNOWN, CYCLIC
     Route: 042
     Dates: start: 2008
  21. ERIBULIN [Suspect]
     Active Substance: ERIBULIN
     Indication: Invasive ductal breast carcinoma
  22. ERIBULIN [Suspect]
     Active Substance: ERIBULIN
     Indication: Metastases to bone
  23. CYCLOPHOSPHAMIDE [Suspect]
     Active Substance: CYCLOPHOSPHAMIDE
     Indication: Invasive ductal breast carcinoma
     Dosage: UNK, CYCLIC
     Route: 065
  24. FLUOROURACIL [Suspect]
     Active Substance: FLUOROURACIL
     Indication: Invasive ductal breast carcinoma
     Dosage: UNK, CYCLIC
     Route: 065
  25. FLUOROURACIL [Suspect]
     Active Substance: FLUOROURACIL
     Dosage: UNK
     Route: 065
  26. VINORELBINE [Suspect]
     Active Substance: VINORELBINE TARTRATE
     Indication: Invasive ductal breast carcinoma
     Dosage: UNK, CYCLIC
     Route: 065
  27. VINORELBINE [Suspect]
     Active Substance: VINORELBINE TARTRATE
     Indication: Metastases to bone
     Dosage: UNK
     Route: 065
  28. NOVANTRONE [Suspect]
     Active Substance: MITOXANTRONE HYDROCHLORIDE
     Indication: Invasive ductal breast carcinoma
     Dosage: UNK, CYCLIC
     Route: 065
  29. NOVANTRONE [Suspect]
     Active Substance: MITOXANTRONE HYDROCHLORIDE
     Dosage: UNK
     Route: 065
  30. FEMARA [Concomitant]
     Active Substance: LETROZOLE
     Indication: Metastases to bone
     Dosage: UNK (DOSE AND FREQUENCY UNKNOWN)
     Route: 065
  31. FEMARA [Concomitant]
     Active Substance: LETROZOLE
     Dosage: DOSE AND FREQUENCY UNKNOWN.
     Route: 065

REACTIONS (8)
  - Anaemia [Unknown]
  - Thrombocytopenia [Unknown]
  - Metastases to bone marrow [Unknown]
  - Product use in unapproved indication [Unknown]
  - Invasive ductal breast carcinoma [Unknown]
  - Disease progression [Unknown]
  - Malignant neoplasm progression [Unknown]
  - Malignant neoplasm progression [Unknown]

NARRATIVE: CASE EVENT DATE: 20080101
